FAERS Safety Report 10419840 (Version 1)
Quarter: 2014Q3

REPORT INFORMATION
  Report Type: Spontaneous
  Country: GR (occurrence: GR)
  Receive Date: 20140829
  Receipt Date: 20140829
  Transmission Date: 20150326
  Serious: Yes (Other)
  Sender: FDA-Public Use
  Company Number: GR-MYLAN-2014M1003079

PATIENT

DRUGS (3)
  1. FENTANYL. [Suspect]
     Active Substance: FENTANYL
     Indication: EPIDURAL ANALGESIA
     Dosage: 50 MCG
     Route: 008
  2. LIDOCAINE. [Concomitant]
     Active Substance: LIDOCAINE
     Dosage: TEST DOSE OF 2.5 ML 2 % LIDOCAINE
     Route: 065
  3. ROPIVACAINE HYDROCHLORIDE [Suspect]
     Active Substance: ROPIVACAINE HYDROCHLORIDE
     Indication: EPIDURAL ANALGESIA
     Dosage: 8ML ROPIVACAINE 0.2%
     Route: 008

REACTIONS (2)
  - Horner^s syndrome [Recovered/Resolved]
  - Maternal exposure during delivery [Recovered/Resolved]
